FAERS Safety Report 14570726 (Version 3)
Quarter: 2018Q2

REPORT INFORMATION
  Report Type: Spontaneous
  Country: DE (occurrence: DE)
  Receive Date: 20180226
  Receipt Date: 20180614
  Transmission Date: 20180711
  Serious: Yes (Hospitalization, Other)
  Sender: FDA-Public Use
  Company Number: DE-ACCORD-063680

PATIENT
  Age: 55 Year
  Sex: Female

DRUGS (4)
  1. AMISULPRIDE [Concomitant]
     Active Substance: AMISULPRIDE
     Dosage: 06-AUG-2017 TO UNK,?08-AUG-2017 TO UNK, ?09-AUG-2017 TO UNK,
     Dates: start: 20170806
  2. QUETIAPINE. [Suspect]
     Active Substance: QUETIAPINE
     Indication: SCHIZOPHRENIA
     Dosage: OTHER REGIMEN WERE ALSO GIVEN WITH DIFFERENT DOSES ON DIFFERENT DATE.
     Route: 048
  3. ARIPIPRAZOLE. [Suspect]
     Active Substance: ARIPIPRAZOLE
     Indication: SCHIZOPHRENIA
     Dosage: SECOND REGIMEN: 25 MG, QD, ORAL FROM 05-AUG-2017 TO UNK
     Route: 048
     Dates: start: 20161001, end: 20170807
  4. LORAZEPAM. [Concomitant]
     Active Substance: LORAZEPAM
     Dosage: 03-AUG-2017 TO 09-AUG-2017,?10-AUG-2017 TO 11-AUG-2017 AND ON 17-AUG-2017 FOR ONE DAY
     Route: 048
     Dates: start: 20170731

REACTIONS (5)
  - Blood folate decreased [Unknown]
  - Fatigue [Not Recovered/Not Resolved]
  - Macrocytosis [Unknown]
  - Vitamin B12 decreased [Unknown]
  - Alopecia [Not Recovered/Not Resolved]

NARRATIVE: CASE EVENT DATE: 20170808
